FAERS Safety Report 24080457 (Version 1)
Quarter: 2024Q3

REPORT INFORMATION
  Report Type: Spontaneous
  Country: GB (occurrence: None)
  Receive Date: 20240711
  Receipt Date: 20240711
  Transmission Date: 20241016
  Serious: Yes (Other)
  Sender: ASTRAZENECA
  Company Number: 2024A153937

PATIENT
  Age: 73 Year
  Sex: Male

DRUGS (1)
  1. DURVALUMAB [Suspect]
     Active Substance: DURVALUMAB
     Indication: Bladder transitional cell carcinoma

REACTIONS (2)
  - Lichenoid keratosis [Unknown]
  - Dermatitis [Unknown]
